FAERS Safety Report 9402484 (Version 1)
Quarter: 2013Q3

REPORT INFORMATION
  Report Type: Spontaneous
  Country: NL (occurrence: NL)
  Receive Date: 20130716
  Receipt Date: 20130716
  Transmission Date: 20140515
  Serious: Yes (Other)
  Sender: FDA-Public Use
  Company Number: NL-PFIZER INC-2013205647

PATIENT
  Sex: Female

DRUGS (2)
  1. ATORVASTATIN PFIZER [Suspect]
     Dosage: UNK
  2. ACETYLSALICYLIC ACID [Concomitant]

REACTIONS (9)
  - Hyperthyroidism [Unknown]
  - Gastric ulcer [Unknown]
  - Urinary incontinence [Unknown]
  - Faecal incontinence [Unknown]
  - Abdominal discomfort [Unknown]
  - Wheezing [Unknown]
  - White blood cell count decreased [Unknown]
  - Muscular weakness [Unknown]
  - Cough [Unknown]
